FAERS Safety Report 4783593-4 (Version None)
Quarter: 2005Q3

REPORT INFORMATION
  Report Type: 
  Country: None (occurrence: None)
  Receive Date: 20050928
  Receipt Date: 20050912
  Transmission Date: 20060218
  Serious: Yes (Hospitalization)
  Sender: FDA-Public Use
  Company Number: EWC050945769

PATIENT
  Age: 65 Year
  Sex: Female
  Weight: 53 kg

DRUGS (2)
  1. FORTEO [Suspect]
     Indication: OSTEOPOROSIS
     Dosage: 20 UG
     Dates: start: 20050721, end: 20050721
  2. ENAC (ENALAPRIL MALEATE) [Concomitant]

REACTIONS (3)
  - CHILLS [None]
  - NAUSEA [None]
  - POST PROCEDURAL COMPLICATION [None]
